FAERS Safety Report 25778609 (Version 1)
Quarter: 2025Q3

REPORT INFORMATION
  Report Type: Spontaneous
  Country: EU (occurrence: EU)
  Receive Date: 20250909
  Receipt Date: 20250909
  Transmission Date: 20251021
  Serious: Yes (Other)
  Sender: AUROBINDO
  Company Number: EU-TEVA-VS-3364307

PATIENT
  Age: 44 Year
  Sex: Female

DRUGS (5)
  1. PACLITAXEL [Suspect]
     Active Substance: PACLITAXEL
     Indication: Breast cancer female
     Route: 065
  2. PACLITAXEL [Suspect]
     Active Substance: PACLITAXEL
     Indication: Metastases to lymph nodes
     Route: 065
  3. PACLITAXEL [Suspect]
     Active Substance: PACLITAXEL
     Route: 065
  4. CARBOPLATIN [Suspect]
     Active Substance: CARBOPLATIN
     Indication: Breast cancer female
     Route: 065
  5. CARBOPLATIN [Suspect]
     Active Substance: CARBOPLATIN
     Indication: Metastases to lymph nodes

REACTIONS (9)
  - Metastasis [Unknown]
  - Abdominal mass [Unknown]
  - Neck pain [Unknown]
  - Pain [Unknown]
  - Breast pain [Unknown]
  - Malaise [Unknown]
  - Asthenia [Unknown]
  - Axillary pain [Unknown]
  - Limb mass [Unknown]
